FAERS Safety Report 25615635 (Version 2)
Quarter: 2025Q3

REPORT INFORMATION
  Report Type: Report from Study
  Country: EU (occurrence: EU)
  Receive Date: 20250729
  Receipt Date: 20250823
  Transmission Date: 20251020
  Serious: No
  Sender: CSL BEHRING
  Company Number: EU-BEH-2025214082

PATIENT
  Age: 91 Year
  Sex: Male

DRUGS (9)
  1. KORSUVA [Suspect]
     Active Substance: DIFELIKEFALIN ACETATE
     Indication: Chronic kidney disease-associated pruritus
     Route: 042
     Dates: start: 20250124, end: 20250719
  2. GABAPENTIN [Concomitant]
     Active Substance: GABAPENTIN
     Dosage: 100 MG (30 CAPSULES: 0-0-1)
  3. BISOPROLOL [Concomitant]
     Active Substance: BISOPROLOL
     Dosage: 2.5 MG 28 TABLETS: 0-0-1
  4. ESOMEPRAZOLE [Concomitant]
     Active Substance: ESOMEPRAZOLE
     Dosage: 20MG 14 CAPSULES: 1-0-0
  5. PROTOPIC [Concomitant]
     Active Substance: TACROLIMUS
     Dosage: 0.1 % 60G OINTMENT
  6. ASPIRIN [Concomitant]
     Active Substance: ASPIRIN
     Dosage: 100 MG 30 TABLETS: 0-1-0
  7. VELPHORO [Concomitant]
     Active Substance: SUCROFERRIC OXYHYDROXIDE
     Dosage: 500 MG, TID
  8. LOKELMA [Concomitant]
     Active Substance: SODIUM ZIRCONIUM CYCLOSILICATE
     Dosage: UNK, QD
  9. SIMVASTATIN [Concomitant]
     Active Substance: SIMVASTATIN

REACTIONS (3)
  - Acute pulmonary oedema [Fatal]
  - Skin lesion [Fatal]
  - Superinfection [Fatal]

NARRATIVE: CASE EVENT DATE: 20250720
